FAERS Safety Report 12571382 (Version 1)
Quarter: 2016Q3

REPORT INFORMATION
  Report Type: Spontaneous
  Country: US (occurrence: US)
  Receive Date: 20160719
  Receipt Date: 20160719
  Transmission Date: 20161109
  Serious: Yes (Hospitalization, Other)
  Sender: FDA-Public Use
  Company Number: US-MYLANLABS-2016M1029400

PATIENT

DRUGS (1)
  1. PINDOLOL TABLETS, USP [Suspect]
     Active Substance: PINDOLOL
     Indication: ATRIAL FIBRILLATION
     Dosage: UNK

REACTIONS (6)
  - Product quality issue [None]
  - Dependence [Not Recovered/Not Resolved]
  - Drug ineffective [Recovered/Resolved]
  - Product physical issue [None]
  - Dyspnoea [Recovered/Resolved]
  - Product substitution issue [None]
